FAERS Safety Report 11045112 (Version 1)
Quarter: 2015Q2

REPORT INFORMATION
  Report Type: Spontaneous
  Country: US (occurrence: US)
  Receive Date: 20150417
  Receipt Date: 20150417
  Transmission Date: 20150821
  Serious: No
  Sender: FDA-Public Use
  Company Number: US-009507513-1504USA015020

PATIENT
  Age: 23 Year
  Sex: Female
  Weight: 70.75 kg

DRUGS (2)
  1. NEXPLANON [Suspect]
     Active Substance: ETONOGESTREL
     Indication: PREMENSTRUAL SYNDROME
     Dosage: 1 ROD EVERY 3 YEARS
     Route: 059
     Dates: start: 20141218
  2. BIOTIN [Concomitant]
     Active Substance: BIOTIN

REACTIONS (4)
  - Weight fluctuation [Not Recovered/Not Resolved]
  - Menorrhagia [Not Recovered/Not Resolved]
  - Polymenorrhoea [Not Recovered/Not Resolved]
  - Therapeutic response unexpected [Unknown]

NARRATIVE: CASE EVENT DATE: 20150101
